FAERS Safety Report 24264899 (Version 1)
Quarter: 2024Q3

REPORT INFORMATION
  Report Type: Spontaneous
  Country: ES (occurrence: ES)
  Receive Date: 20240829
  Receipt Date: 20240829
  Transmission Date: 20241016
  Serious: Yes (Other)
  Sender: PFIZER
  Company Number: None

PATIENT
  Age: 77 Year
  Sex: Male

DRUGS (4)
  1. DILTIAZEM HYDROCHLORIDE [Interacting]
     Active Substance: DILTIAZEM HYDROCHLORIDE
     Dosage: 120 MG, 2X/DAY
     Route: 048
     Dates: start: 20240622, end: 20240625
  2. IVABRADINE [Interacting]
     Active Substance: IVABRADINE
     Indication: Angina unstable
     Dosage: 2 MG, 1X/DAY
     Route: 048
     Dates: start: 20160315
  3. ISOSORBIDE MONONITRATE [Interacting]
     Active Substance: ISOSORBIDE MONONITRATE
     Indication: Angina unstable
     Dosage: 40 MG, 1X/DAY
     Route: 048
     Dates: start: 20240620
  4. AMLODIPINE [Interacting]
     Active Substance: AMLODIPINE BESYLATE
     Indication: Hypertension
     Dosage: 10 MG, 1X/DAY
     Route: 048
     Dates: start: 20190715, end: 20240625

REACTIONS (5)
  - Orthostatic hypotension [Recovered/Resolved]
  - Bradycardia [Recovered/Resolved]
  - Vomiting [Recovered/Resolved]
  - Renal failure [Recovered/Resolved]
  - Drug interaction [Unknown]

NARRATIVE: CASE EVENT DATE: 20240622
